FAERS Safety Report 7009337-3 (Version None)
Quarter: 2010Q3

REPORT INFORMATION
  Report Type: 
  Country: None (occurrence: None)
  Receive Date: 20100923
  Receipt Date: 20100915
  Transmission Date: 20110219
  Serious: Yes (Other)
  Sender: FDA-Public Use
  Company Number: FR-KINGPHARMUSA00001-K201001157

PATIENT
  Age: 62 Year
  Sex: Female

DRUGS (3)
  1. ALTACE [Suspect]
     Dosage: 10 MG, QD
     Route: 048
     Dates: start: 20100823, end: 20100830
  2. ALTACE [Suspect]
     Dosage: UNK
     Dates: end: 20100822
  3. ALTACE [Suspect]
     Dosage: UNK
     Dates: start: 20100830

REACTIONS (3)
  - BLOOD PRESSURE SYSTOLIC INCREASED [None]
  - HEADACHE [None]
  - HYPERTENSIVE CRISIS [None]
